FAERS Safety Report 16007980 (Version 1)
Quarter: 2019Q1

REPORT INFORMATION
  Report Type: Spontaneous
  Country: IT (occurrence: IT)
  Receive Date: 20190224
  Receipt Date: 20190224
  Transmission Date: 20190418
  Serious: Yes (Hospitalization)
  Sender: FDA-Public Use
  Company Number: IT-009507513-1902ITA007897

PATIENT
  Age: 17 Year
  Sex: Female

DRUGS (2)
  1. SIMVASTATIN. [Suspect]
     Active Substance: SIMVASTATIN
     Dosage: UNK
     Route: 048
     Dates: start: 20180721, end: 20180721
  2. LORAZEPAM. [Suspect]
     Active Substance: LORAZEPAM
     Dosage: ON THE SAME DATE, THE PATIENT STARTED
     Route: 048
     Dates: start: 20180721, end: 20180721

REACTIONS (1)
  - Somnolence [Recovered/Resolved]

NARRATIVE: CASE EVENT DATE: 20180721
